FAERS Safety Report 6162455 (Version 2)
Quarter: 2013Q1

REPORT INFORMATION
  Report Type: Spontaneous
  Country: BR (occurrence: BR)
  Receive Date: 20061107
  Receipt Date: 20130328
  Transmission Date: 20140127
  Serious: Yes (Hospitalization, Other)
  Sender: FDA-Public Use
  Company Number: PHBS2006BR16839

PATIENT
  Sex: Female
  Weight: 57 kg

DRUGS (2)
  1. FORASEQ [Suspect]
     Indication: ASTHMA
     Dosage: UNK, BID
     Dates: start: 2003
  2. VENLAFAXINE [Concomitant]
     Indication: DEPRESSION
     Dosage: UNK UKN, BID
     Route: 048
     Dates: start: 1995

REACTIONS (3)
  - Loss of consciousness [Recovered/Resolved]
  - Dyspnoea [Recovered/Resolved]
  - Malaise [Recovered/Resolved]
